FAERS Safety Report 7142029-9 (Version None)
Quarter: 2010Q4

REPORT INFORMATION
  Report Type: 
  Country: None (occurrence: None)
  Receive Date: 20101207
  Receipt Date: 20101202
  Transmission Date: 20110411
  Serious: Yes (Hospitalization)
  Sender: FDA-Public Use
  Company Number: A0897416A

PATIENT
  Age: 72 Year
  Sex: Female

DRUGS (4)
  1. WELLBUTRIN SR [Suspect]
     Indication: DEPRESSION
     Dosage: 150MG PER DAY
     Route: 048
     Dates: start: 20101111, end: 20101115
  2. PREMARIN [Concomitant]
  3. ARMOUR THYROID [Concomitant]
  4. DEPLIN [Concomitant]

REACTIONS (6)
  - DYSPNOEA [None]
  - LIVEDO RETICULARIS [None]
  - RASH [None]
  - SKIN DISCOLOURATION [None]
  - THERMAL BURN [None]
  - TREMOR [None]
